FAERS Safety Report 15680690 (Version 2)
Quarter: 2019Q1

REPORT INFORMATION
  Report Type: Spontaneous
  Country: US (occurrence: US)
  Receive Date: 20181203
  Receipt Date: 20190107
  Transmission Date: 20190417
  Serious: Yes (Hospitalization)
  Sender: FDA-Public Use
  Company Number: US-JNJFOC-20181140896

PATIENT
  Age: 58 Year
  Sex: Male
  Weight: 89.95 kg

DRUGS (1)
  1. INVOKANA [Suspect]
     Active Substance: CANAGLIFLOZIN
     Indication: TYPE 2 DIABETES MELLITUS
     Route: 048
     Dates: start: 20150911

REACTIONS (6)
  - Gangrene [Recovering/Resolving]
  - Osteomyelitis [Recovering/Resolving]
  - Foot amputation [Unknown]
  - Diabetic foot [Recovering/Resolving]
  - Cellulitis [Recovering/Resolving]
  - Extremity necrosis [Recovering/Resolving]

NARRATIVE: CASE EVENT DATE: 201604
